FAERS Safety Report 10263172 (Version 2)
Quarter: 2014Q2

REPORT INFORMATION
  Report Type: Report from Study
  Country: US (occurrence: US)
  Receive Date: 20140626
  Receipt Date: 20140626
  Transmission Date: 20141212
  Serious: Yes (Other)
  Sender: FDA-Public Use
  Company Number: US-MYLANLABS-2014S1004827

PATIENT
  Age: 42 Year
  Sex: Male
  Weight: 86.18 kg

DRUGS (13)
  1. CLOZAPINE TABLETS [Suspect]
     Indication: PSYCHOTIC DISORDER
     Route: 048
     Dates: start: 201005, end: 20140505
  2. CLOZAPINE TABLETS [Suspect]
     Indication: SCHIZOPHRENIA
     Route: 048
     Dates: start: 201005, end: 20140505
  3. METOPROLOL SUCCINATE EXTENDED-RELEASE TABLETS USP [Concomitant]
     Route: 048
  4. ATORVASTATIN [Concomitant]
     Route: 048
  5. AMLODIPINE [Concomitant]
     Route: 048
  6. FAMOTIDINE [Concomitant]
     Route: 048
  7. LISINOPRIL [Concomitant]
     Route: 048
  8. LORAZEPAM [Concomitant]
  9. OMEGA-3 [Concomitant]
     Route: 048
  10. RISPERIDONE [Concomitant]
     Indication: SCHIZOPHRENIA
     Dosage: INCREASED TO0.5MG BID
     Route: 048
     Dates: end: 20140516
  11. CLONAZEPAM [Concomitant]
     Dosage: INCREASED TO 0.5MG QD
     Dates: end: 20140516
  12. ALEXA [Concomitant]
     Dates: end: 20140516
  13. TOPAMAX [Concomitant]
     Route: 048
     Dates: end: 20140516

REACTIONS (1)
  - Granulocytopenia [Recovered/Resolved]
